FAERS Safety Report 6398281-0 (Version None)
Quarter: 2009Q4

REPORT INFORMATION
  Report Type: 
  Country: None (occurrence: None)
  Receive Date: 20091007
  Receipt Date: 20091002
  Transmission Date: 20100525
  Serious: Yes (Death)
  Sender: FDA-Public Use
  Company Number: 2009010753

PATIENT
  Age: 35 Year
  Sex: Male
  Weight: 63 kg

DRUGS (6)
  1. EFFENTORA (TABLETS) [Suspect]
     Indication: CANCER PAIN
     Dosage: 400 MCG, EVERY 4 HOURS IF NECESSARY, BU
     Route: 002
     Dates: start: 20090910, end: 20090926
  2. FENTANYL [Suspect]
     Indication: CANCER PAIN
     Dosage: 125 MCG, TRANSDERMAL
     Route: 062
     Dates: start: 20090910, end: 20090926
  3. MEGASTROL ACETATE (MEGESTROL ACETATE) [Concomitant]
  4. OMEPRAZOLE [Concomitant]
  5. HEPAREGEN (TIMONACIC) [Concomitant]
  6. NYSTATYNA (NYSTATIN) [Concomitant]

REACTIONS (4)
  - HYPOVOLAEMIA [None]
  - INAPPROPRIATE SCHEDULE OF DRUG ADMINISTRATION [None]
  - MALIGNANT NEOPLASM PROGRESSION [None]
  - OVERDOSE [None]
